FAERS Safety Report 24405534 (Version 1)
Quarter: 2024Q4

REPORT INFORMATION
  Report Type: Spontaneous
  Country: US (occurrence: US)
  Receive Date: 20241007
  Receipt Date: 20241007
  Transmission Date: 20250115
  Serious: No
  Sender: ROCHE
  Company Number: US-ROCHE-10000097026

PATIENT
  Sex: Female

DRUGS (4)
  1. XOLAIR [Suspect]
     Active Substance: OMALIZUMAB
     Indication: Product used for unknown indication
     Route: 058
     Dates: start: 202409
  2. XOLAIR [Suspect]
     Active Substance: OMALIZUMAB
  3. POLIOMYELITIS VACCINE NOS [Concomitant]
     Active Substance: POLIOMYELITIS VACCINE
  4. HEPATITIS B VIRUS VACCINE [Concomitant]
     Active Substance: HEPATITIS B VIRUS VACCINE

REACTIONS (5)
  - Oropharyngeal pain [Unknown]
  - Feeling hot [Unknown]
  - Joint swelling [Unknown]
  - Joint swelling [Unknown]
  - Peripheral swelling [Unknown]
